FAERS Safety Report 21028771 (Version 1)
Quarter: 2022Q2

REPORT INFORMATION
  Report Type: Spontaneous
  Country: US (occurrence: None)
  Receive Date: 20220630
  Receipt Date: 20220630
  Transmission Date: 20220721
  Serious: No
  Sender: FDA-Public Use
  Company Number: None

PATIENT
  Age: 71 Year
  Sex: Female
  Weight: 88.2 kg

DRUGS (1)
  1. LEQVIO [Suspect]
     Active Substance: INCLISIRAN SODIUM
     Indication: Coronary artery disease
     Route: 058
     Dates: start: 20220524

REACTIONS (3)
  - Diarrhoea [None]
  - Gastrointestinal disorder [None]
  - Diarrhoea [None]

NARRATIVE: CASE EVENT DATE: 20220524
